FAERS Safety Report 12301573 (Version 1)
Quarter: 2016Q2

REPORT INFORMATION
  Report Type: Spontaneous
  Country: US (occurrence: US)
  Receive Date: 20160425
  Receipt Date: 20160425
  Transmission Date: 20160815
  Serious: Yes (Other)
  Sender: FDA-Public Use
  Company Number: US-ASTELLAS-2015US045695

PATIENT
  Age: 73 Year
  Sex: Male

DRUGS (1)
  1. LEXISCAN [Suspect]
     Active Substance: REGADENOSON
     Indication: SCAN MYOCARDIAL PERFUSION
     Dosage: UNK UNK, UNKNOWN FREQ. (ADMINISTERED OVER 10 SECONDS)
     Route: 065
     Dates: start: 20151104, end: 20151104

REACTIONS (1)
  - Atrioventricular block [Recovered/Resolved]

NARRATIVE: CASE EVENT DATE: 20151104
